FAERS Safety Report 8306265-8 (Version None)
Quarter: 2012Q2

REPORT INFORMATION
  Report Type: 
  Country: None (occurrence: None)
  Receive Date: 20120423
  Receipt Date: 20120413
  Transmission Date: 20120825
  Serious: Yes (Other)
  Sender: FDA-Public Use
  Company Number: US-ROCHE-677442

PATIENT
  Sex: Male
  Weight: 76.7 kg

DRUGS (4)
  1. INCIVEK [Suspect]
     Indication: HEPATITIS C
  2. COPEGUS [Suspect]
     Indication: HEPATITIS C
     Route: 048
  3. PRILOSEC [Concomitant]
  4. PEGASYS [Suspect]
     Indication: HEPATITIS C
     Route: 058

REACTIONS (2)
  - HEPATITIS C [None]
  - DEEP VEIN THROMBOSIS [None]
